FAERS Safety Report 9925353 (Version 2)
Quarter: 2014Q1

REPORT INFORMATION
  Report Type: Spontaneous
  Country: US (occurrence: US)
  Receive Date: 20140226
  Receipt Date: 20140307
  Transmission Date: 20141002
  Serious: Yes (Other)
  Sender: FDA-Public Use
  Company Number: US-PFIZER INC-2014052281

PATIENT
  Age: 71 Year
  Sex: Female
  Weight: 57.14 kg

DRUGS (2)
  1. GLUCOTROL XL [Suspect]
     Indication: DIABETES MELLITUS
     Dosage: 5 MG, DAILY
  2. DETROL LA [Suspect]
     Indication: BLADDER DISORDER
     Dosage: 4 MG, DAILY

REACTIONS (1)
  - Rotator cuff syndrome [Unknown]
